FAERS Safety Report 25160586 (Version 1)
Quarter: 2025Q2

REPORT INFORMATION
  Report Type: Spontaneous
  Country: PL (occurrence: PL)
  Receive Date: 20250404
  Receipt Date: 20250404
  Transmission Date: 20250717
  Serious: Yes (Hospitalization)
  Sender: MERCK SHARP & DOHME LLC
  Company Number: None

PATIENT
  Age: 1 Year
  Sex: Female

DRUGS (3)
  1. VARIVAX [Suspect]
     Active Substance: VARICELLA-ZOSTER VIRUS STRAIN OKA/MERCK LIVE ANTIGEN
     Indication: Immunisation
     Route: 030
     Dates: start: 20240611, end: 20240611
  2. M-M-RVAXPRO [Suspect]
     Active Substance: MEASLES VIRUS STRAIN ENDERS^ ATTENUATED EDMONSTON LIVE ANTIGEN\MUMPS VIRUS STRAIN B LEVEL JERYL LYNN
     Indication: Immunisation
     Route: 030
     Dates: start: 20240611, end: 20240611
  3. STERILE DILUENT (WATER) [Suspect]
     Active Substance: WATER
     Route: 030
     Dates: start: 20240611, end: 20240611

REACTIONS (3)
  - Pyrexia [Unknown]
  - Febrile convulsion [Unknown]
  - Diarrhoea [Unknown]

NARRATIVE: CASE EVENT DATE: 20240616
